FAERS Safety Report 6491731-0 (Version None)
Quarter: 2009Q4

REPORT INFORMATION
  Report Type: 
  Country: None (occurrence: None)
  Receive Date: 20091208
  Receipt Date: 20091201
  Transmission Date: 20100525
  Serious: Yes (Life-Threatening)
  Sender: FDA-Public Use
  Company Number: 2009SP039392

PATIENT
  Sex: Female

DRUGS (7)
  1. BRIDION (SUGAMMADEX) [Suspect]
     Indication: DRUG USE FOR UNKNOWN INDICATION
     Dosage: 16 MG/KG;ONCE;IV
     Route: 042
  2. ESMERON (ROCURONIUM BRODMIDE) (ROCURONIUM BROMIDE) [Suspect]
     Indication: DRUG USE FOR UNKNOWN INDICATION
     Dosage: 1.2 MG/KG; ONCE; IV
     Route: 042
  3. RISPERDAL [Concomitant]
  4. PENTOTHAL [Concomitant]
  5. SUFENTANIL CITRATE [Concomitant]
  6. SYNTOCINON [Concomitant]
  7. CEFAZOLIN [Concomitant]

REACTIONS (1)
  - CARDIAC ARREST [None]
